FAERS Safety Report 8061991-3 (Version None)
Quarter: 2012Q1

REPORT INFORMATION
  Report Type: 
  Country: None (occurrence: None)
  Receive Date: 20120118
  Receipt Date: 20120107
  Transmission Date: 20120608
  Serious: Yes (Death, Life-Threatening, Hospitalization, Other)
  Sender: FDA-Public Use
  Company Number: 2011SGN00245

PATIENT
  Age: 86 Year
  Sex: Male

DRUGS (15)
  1. SENNA (SENNA) [Concomitant]
  2. TERAZOSIN HCL [Concomitant]
  3. PEPCID [Concomitant]
  4. PLAVIX [Concomitant]
  5. PSEUDOEPHEDRINE HCL [Concomitant]
  6. MECLIZINE [Concomitant]
  7. EFFEXOR XR [Concomitant]
  8. BRENTUXIMAB VEDOTIN (BRENTUXIMAB VEDOTIN) INJECTION [Suspect]
     Indication: LYMPHOMA
     Dosage: 1.8 MG/KG, Q21D, INTRAVENOUS
     Route: 042
     Dates: start: 20111006, end: 20111006
  9. COZAAR [Concomitant]
  10. VESICARE [Concomitant]
  11. SIMVASTATIN [Concomitant]
  12. BUMEX [Concomitant]
  13. HYDROCODONE BITARTRATE AND ACETAMINOPHEN (HYDROCODONE BITARTRATE, PARA [Concomitant]
  14. METOPROLOL TARTRATE [Concomitant]
  15. SINGULAIR [Concomitant]

REACTIONS (21)
  - PAIN [None]
  - UNRESPONSIVE TO STIMULI [None]
  - PYREXIA [None]
  - AGITATION [None]
  - DELIRIUM [None]
  - MYOCARDIAL INFARCTION [None]
  - PULMONARY OEDEMA [None]
  - SEPSIS [None]
  - DECREASED APPETITE [None]
  - CARDIAC FAILURE CONGESTIVE [None]
  - ABASIA [None]
  - HALLUCINATION, VISUAL [None]
  - MYALGIA [None]
  - NAUSEA [None]
  - TREMOR [None]
  - MALAISE [None]
  - RENAL FAILURE ACUTE [None]
  - DIALYSIS [None]
  - DEHYDRATION [None]
  - RESPIRATORY ARREST [None]
  - FLUID INTAKE REDUCED [None]
